FAERS Safety Report 7615788-6 (Version None)
Quarter: 2011Q3

REPORT INFORMATION
  Report Type: 
  Country: None (occurrence: None)
  Receive Date: 20110715
  Receipt Date: 20110715
  Transmission Date: 20111222
  Serious: No
  Sender: FDA-Public Use
  Company Number: None

PATIENT
  Age: 75 Year
  Sex: Male
  Weight: 94 kg

DRUGS (1)
  1. LANSOPRAZOLE [Suspect]
     Indication: GASTROOESOPHAGEAL REFLUX DISEASE
     Dosage: 30MG BID PO
     Route: 048
     Dates: start: 20101101, end: 20101201

REACTIONS (5)
  - VOMITING [None]
  - NAUSEA [None]
  - ABDOMINAL PAIN UPPER [None]
  - DIARRHOEA [None]
  - DECREASED APPETITE [None]
